FAERS Safety Report 8914949 (Version 3)
Quarter: 2014Q2

REPORT INFORMATION
  Report Type: Spontaneous
  Country: US (occurrence: US)
  Receive Date: 20121116
  Receipt Date: 20130810
  Transmission Date: 20141212
  Serious: Yes (Hospitalization, Other)
  Sender: FDA-Public Use
  Company Number: US-BAXTER-2012BAX023791

PATIENT
  Age: 4 Month
  Sex: Male

DRUGS (2)
  1. DIANEAL PD2 [Suspect]
     Indication: RENAL FAILURE
     Route: 033
     Dates: end: 20121111
  2. DIANEAL PD2 [Suspect]
     Route: 033
     Dates: start: 20121112

REACTIONS (5)
  - Renal failure [Recovering/Resolving]
  - Respiratory failure [Recovered/Resolved]
  - Convulsion [Recovering/Resolving]
  - Hyponatraemia [Recovering/Resolving]
  - Fluid overload [Recovering/Resolving]
